FAERS Safety Report 8928736 (Version 1)
Quarter: 2012Q4

REPORT INFORMATION
  Report Type: Spontaneous
  Country: US (occurrence: None)
  Receive Date: 20121126
  Receipt Date: 20121126
  Transmission Date: 20130627
  Serious: No
  Sender: FDA-Public Use
  Company Number: None

PATIENT
  Age: 31 Year
  Sex: Female
  Weight: 86.18 kg

DRUGS (1)
  1. MIRENA, BIRTH CONTROL IUD [Suspect]
     Indication: BIRTH CONTROL
     Route: 067
     Dates: start: 20100601, end: 20120201

REACTIONS (9)
  - Skin disorder [None]
  - Acne [None]
  - Hair growth abnormal [None]
  - Emotional disorder [None]
  - Affective disorder [None]
  - Abdominal pain [None]
  - Complication of device removal [None]
  - Device breakage [None]
  - Device dislocation [None]
